FAERS Safety Report 19106823 (Version 1)
Quarter: 2021Q2

REPORT INFORMATION
  Report Type: Report from Study
  Country: AU (occurrence: AU)
  Receive Date: 20210408
  Receipt Date: 20210408
  Transmission Date: 20210717
  Serious: Yes (Hospitalization)
  Sender: FDA-Public Use
  Company Number: AU-ROCHE-2799878

PATIENT

DRUGS (1)
  1. ATEZOLIZUMAB. [Suspect]
     Active Substance: ATEZOLIZUMAB
     Indication: TRIPLE NEGATIVE BREAST CANCER
     Dosage: LAST DOSE: 24/FEB/2021
     Route: 042
     Dates: start: 20210203

REACTIONS (1)
  - Metastases to meninges [Unknown]

NARRATIVE: CASE EVENT DATE: 20210320
